FAERS Safety Report 6592639-2 (Version None)
Quarter: 2010Q1

REPORT INFORMATION
  Report Type: 
  Country: None (occurrence: None)
  Receive Date: 20100222
  Receipt Date: 20100210
  Transmission Date: 20100710
  Serious: Yes (Hospitalization)
  Sender: FDA-Public Use
  Company Number: US-BIOGENIDEC-2009BI025780

PATIENT
  Age: 50 Year
  Sex: Female
  Weight: 104 kg

DRUGS (1)
  1. TYSABRI [Suspect]
     Indication: MULTIPLE SCLEROSIS
     Route: 042
     Dates: start: 20080829, end: 20090708

REACTIONS (10)
  - ABDOMINAL ABSCESS [None]
  - ALANINE AMINOTRANSFERASE INCREASED [None]
  - ASPARTATE AMINOTRANSFERASE INCREASED [None]
  - BLOOD ALKALINE PHOSPHATASE INCREASED [None]
  - BLOOD MAGNESIUM DECREASED [None]
  - DYSKINESIA [None]
  - GAIT DISTURBANCE [None]
  - LUNG ABSCESS [None]
  - OBESITY [None]
  - POST PROCEDURAL COMPLICATION [None]
